FAERS Safety Report 15142786 (Version 1)
Quarter: 2018Q3

REPORT INFORMATION
  Report Type: Spontaneous
  Country: US (occurrence: US)
  Receive Date: 20180713
  Receipt Date: 20180713
  Transmission Date: 20181010
  Serious: No
  Sender: FDA-Public Use
  Company Number: US-ASTELLAS-2017US053118

PATIENT
  Age: 45 Year
  Sex: Female

DRUGS (1)
  1. MYRBETRIQ [Suspect]
     Active Substance: MIRABEGRON
     Indication: CYSTITIS INTERSTITIAL
     Route: 048
     Dates: start: 20161211, end: 20161212

REACTIONS (3)
  - Drug ineffective for unapproved indication [Recovered/Resolved]
  - Intentional product misuse [Unknown]
  - Abdominal pain upper [Recovered/Resolved]

NARRATIVE: CASE EVENT DATE: 20161211
